FAERS Safety Report 7569775-7 (Version None)
Quarter: 2011Q2

REPORT INFORMATION
  Report Type: 
  Country: None (occurrence: None)
  Receive Date: 20110624
  Receipt Date: 20110615
  Transmission Date: 20111010
  Serious: Yes (Other)
  Sender: FDA-Public Use
  Company Number: AU-JNJFOC-20110609014

PATIENT
  Sex: Male

DRUGS (5)
  1. STELARA [Suspect]
     Route: 058
     Dates: start: 20110106
  2. STELARA [Suspect]
     Route: 058
     Dates: start: 20101014
  3. STELARA [Suspect]
     Indication: PSORIASIS
     Route: 058
     Dates: start: 20100722
  4. STELARA [Suspect]
     Route: 058
     Dates: start: 20100429
  5. STELARA [Suspect]
     Route: 058
     Dates: start: 20091015

REACTIONS (1)
  - OBESITY SURGERY [None]
